FAERS Safety Report 14946756 (Version 1)
Quarter: 2018Q2

REPORT INFORMATION
  Report Type: Spontaneous
  Country: US (occurrence: US)
  Receive Date: 20180529
  Receipt Date: 20180529
  Transmission Date: 20180711
  Serious: Yes (Other)
  Sender: FDA-Public Use
  Company Number: US-MYLANLABS-2018M1033438

PATIENT
  Sex: Female
  Weight: 91 kg

DRUGS (5)
  1. DICYCLOVERINE [Suspect]
     Active Substance: DICYCLOMINE HYDROCHLORIDE
     Indication: GASTROINTESTINAL DISORDER
     Dosage: 10 MG, TID
  2. DICYCLOVERINE [Suspect]
     Active Substance: DICYCLOMINE HYDROCHLORIDE
     Indication: ANXIETY
  3. SEROQUEL [Suspect]
     Active Substance: QUETIAPINE FUMARATE
     Indication: DEPRESSION
     Dosage: 50 MG, UNK
     Route: 048
  4. DICYCLOVERINE [Suspect]
     Active Substance: DICYCLOMINE HYDROCHLORIDE
     Indication: GASTROINTESTINAL DISORDER
     Dosage: 20 MG, TID
     Route: 048
     Dates: end: 20180101
  5. DICYCLOVERINE [Suspect]
     Active Substance: DICYCLOMINE HYDROCHLORIDE
     Indication: ANXIETY
     Dosage: 20 MG, TID
     Dates: end: 20180101

REACTIONS (3)
  - Atrial fibrillation [Recovering/Resolving]
  - Palpitations [Recovering/Resolving]
  - Adverse event [Recovering/Resolving]
